FAERS Safety Report 8533437-X (Version None)
Quarter: 2012Q3

REPORT INFORMATION
  Report Type: 
  Country: None (occurrence: None)
  Receive Date: 20120724
  Receipt Date: 20120719
  Transmission Date: 20120928
  Serious: Yes (Other)
  Sender: FDA-Public Use
  Company Number: BR-BAYER-2012-072847

PATIENT
  Age: 52 Year
  Sex: Female

DRUGS (2)
  1. MIRENA [Suspect]
     Indication: CONTRACEPTION
     Dosage: 20 ?G/D, CONT
     Route: 015
     Dates: start: 20120613
  2. MIRENA [Suspect]
     Indication: MENORRHAGIA

REACTIONS (3)
  - ABDOMINAL PAIN [None]
  - RECTAL HAEMORRHAGE [None]
  - DIARRHOEA [None]
